FAERS Safety Report 8574464-6 (Version None)
Quarter: 2012Q3

REPORT INFORMATION
  Report Type: 
  Country: None (occurrence: None)
  Receive Date: 20120806
  Receipt Date: 20120227
  Transmission Date: 20120928
  Serious: No
  Sender: FDA-Public Use
  Company Number: US-ABBOTT-12P-163-0910803-00

PATIENT
  Age: 33 Year
  Sex: Male
  Weight: 86.26 kg

DRUGS (1)
  1. DEPAKOTE ER [Suspect]
     Indication: ELECTROENCEPHALOGRAM ABNORMAL
     Route: 048
     Dates: start: 20111205, end: 20120116

REACTIONS (1)
  - ALOPECIA [None]
